FAERS Safety Report 14289569 (Version 1)
Quarter: 2017Q4

REPORT INFORMATION
  Report Type: Spontaneous
  Country: US (occurrence: US)
  Receive Date: 20171215
  Receipt Date: 20171215
  Transmission Date: 20180321
  Serious: Yes (Other)
  Sender: FDA-Public Use
  Company Number: US-ORION CORPORATION ORION PHARMA-TREX2017-3839

PATIENT
  Age: 65 Year
  Sex: Male

DRUGS (21)
  1. RITUXAN [Suspect]
     Active Substance: RITUXIMAB
     Dosage: EIGHT CYCLES OF CHEMOTHERAPY (R-CHOP)
     Route: 065
  2. RITUXAN [Suspect]
     Active Substance: RITUXIMAB
     Route: 065
     Dates: start: 201012
  3. PREDNISONE. [Suspect]
     Active Substance: PREDNISONE
     Route: 065
     Dates: start: 201202
  4. RITUXAN [Suspect]
     Active Substance: RITUXIMAB
     Dosage: 3 CYCLES OF SALVAGE RITUXIMAB (R-ICE)
     Route: 065
  5. VINCRISTINE [Suspect]
     Active Substance: VINCRISTINE
     Dosage: EIGHT CYCLES OF CHEMOTHERAPY (R-CHOP)
     Route: 065
  6. ARA-C [Suspect]
     Active Substance: CYTARABINE
     Route: 065
     Dates: start: 201003
  7. DOXORUBICIN [Suspect]
     Active Substance: DOXORUBICIN
     Route: 065
  8. PREDNISONE. [Suspect]
     Active Substance: PREDNISONE
     Dosage: EIGHT CYCLES OF CHEMOTHERAPY (R-CHOP)
     Route: 065
  9. FLUDARABINE [Suspect]
     Active Substance: FLUDARABINE PHOSPHATE
     Route: 065
  10. ARA-C [Suspect]
     Active Substance: CYTARABINE
     Route: 065
     Dates: start: 201012
  11. CARBOPLATIN. [Suspect]
     Active Substance: CARBOPLATIN
     Dosage: 3 CYCLES OF SALVAGE, (R-ICE)
     Route: 065
  12. METHOTREXATE. [Suspect]
     Active Substance: METHOTREXATE
     Route: 065
     Dates: start: 201012
  13. RITUXAN [Suspect]
     Active Substance: RITUXIMAB
     Dosage: CONDITIONING
     Route: 065
     Dates: start: 201102
  14. CYTOXAN [Suspect]
     Active Substance: CYCLOPHOSPHAMIDE
     Route: 065
  15. ETOPOSIDE. [Suspect]
     Active Substance: ETOPOSIDE
     Route: 065
     Dates: start: 201003
  16. RITUXAN [Suspect]
     Active Substance: RITUXIMAB
     Route: 065
     Dates: start: 201202
  17. CYTOXAN [Suspect]
     Active Substance: CYCLOPHOSPHAMIDE
     Dosage: EIGHT CYCLES OF CHEMOTHERAPY (R-CHOP)
     Route: 065
  18. IFOSFAMIDE. [Suspect]
     Active Substance: IFOSFAMIDE
     Dosage: 3 CYCLES OF SALVAGE (R-ICE)
     Route: 065
  19. BICNU [Suspect]
     Active Substance: CARMUSTINE
     Route: 065
     Dates: start: 201003
  20. CYTOXAN [Suspect]
     Active Substance: CYCLOPHOSPHAMIDE
     Route: 065
     Dates: start: 201003
  21. ETOPOSIDE. [Suspect]
     Active Substance: ETOPOSIDE
     Dosage: RECEIVED THREE CYCLES (R-ICE)
     Route: 065

REACTIONS (3)
  - Coccidioidomycosis [Unknown]
  - Diffuse large B-cell lymphoma [Recovered/Resolved]
  - Therapeutic response decreased [Unknown]

NARRATIVE: CASE EVENT DATE: 201012
